FAERS Safety Report 7781619-7 (Version None)
Quarter: 2011Q3

REPORT INFORMATION
  Report Type: 
  Country: None (occurrence: None)
  Receive Date: 20110927
  Receipt Date: 20110519
  Transmission Date: 20111222
  Serious: No
  Sender: FDA-Public Use
  Company Number: US-BAYER-2011-044409

PATIENT
  Sex: Female

DRUGS (2)
  1. ULTRACET [Concomitant]
  2. ALEVE (CAPLET) [Suspect]
     Indication: ARTHRITIS
     Dosage: 220 MG, BID
     Route: 048
     Dates: start: 20110519, end: 20110522

REACTIONS (1)
  - DRUG INEFFECTIVE [None]
